FAERS Safety Report 6288770-1 (Version None)
Quarter: 2009Q3

REPORT INFORMATION
  Report Type: 
  Country: None (occurrence: None)
  Receive Date: 20090729
  Receipt Date: 20090727
  Transmission Date: 20100115
  Serious: Yes (Death)
  Sender: FDA-Public Use
  Company Number: PHEH2008US11584

PATIENT
  Sex: Female

DRUGS (5)
  1. GLEEVEC [Suspect]
     Indication: CHRONIC MYELOID LEUKAEMIA
     Dosage: 800 MG, QD
     Route: 048
     Dates: start: 20050601, end: 20070301
  2. GLEEVEC [Suspect]
     Indication: GASTROINTESTINAL STROMAL TUMOUR
     Dosage: UNK
     Dates: start: 20070901, end: 20080101
  3. GLEEVEC [Suspect]
     Dosage: UNK
     Dates: start: 20080301, end: 20080601
  4. SUTENT [Concomitant]
  5. SORAFENIB [Concomitant]

REACTIONS (4)
  - GASTROINTESTINAL CANCER METASTATIC [None]
  - HEPATIC FAILURE [None]
  - MALIGNANT NEOPLASM PROGRESSION [None]
  - RENAL FAILURE [None]
